FAERS Safety Report 4823018-3 (Version None)
Quarter: 2005Q4

REPORT INFORMATION
  Report Type: 
  Country: None (occurrence: None)
  Receive Date: 20051104
  Receipt Date: 20051024
  Transmission Date: 20060501
  Serious: Yes (Hospitalization)
  Sender: FDA-Public Use
  Company Number: 218982

PATIENT
  Sex: Male

DRUGS (1)
  1. NUTROPIN AQ [Suspect]
     Dosage: UNK
     Route: 065

REACTIONS (4)
  - ABDOMINAL PAIN [None]
  - CONVULSION [None]
  - PYREXIA [None]
  - URTICARIA [None]
